FAERS Safety Report 10778902 (Version 1)
Quarter: 2015Q1

REPORT INFORMATION
  Report Type: Spontaneous
  Country: US (occurrence: US)
  Receive Date: 20150210
  Receipt Date: 20150210
  Transmission Date: 20150721
  Serious: No
  Sender: FDA-Public Use
  Company Number: US-009507513-1502USA002007

PATIENT
  Sex: Female
  Weight: 132.43 kg

DRUGS (2)
  1. NEXPLANON [Suspect]
     Active Substance: ETONOGESTREL
     Indication: CONTRACEPTION
     Dosage: 1 ROD UP TO 3 YEARS
     Route: 059
     Dates: start: 20140305
  2. IMPLANON [Concomitant]
     Active Substance: ETONOGESTREL
     Route: 059

REACTIONS (4)
  - Menorrhagia [Recovered/Resolved]
  - Night sweats [Unknown]
  - Trichorrhexis [Unknown]
  - Alopecia [Unknown]
